FAERS Safety Report 23714725 (Version 2)
Quarter: 2025Q4

REPORT INFORMATION
  Report Type: Report from Study
  Country: CA (occurrence: CA)
  Receive Date: 20240406
  Receipt Date: 20251111
  Transmission Date: 20260117
  Serious: No
  Sender: ABBVIE
  Company Number: None

PATIENT
  Sex: Female

DRUGS (1)
  1. ESCITALOPRAM [Suspect]
     Active Substance: ESCITALOPRAM OXALATE
     Indication: Antidepressant therapy
     Route: 048

REACTIONS (1)
  - Maternal exposure during pregnancy [Unknown]
